FAERS Safety Report 21677101 (Version 3)
Quarter: 2023Q2

REPORT INFORMATION
  Report Type: Report from Study
  Country: US (occurrence: US)
  Receive Date: 20221203
  Receipt Date: 20230409
  Transmission Date: 20230722
  Serious: Yes (Other)
  Sender: FDA-Public Use
  Company Number: US-002147023-NVSC2022US277742

PATIENT
  Sex: Female

DRUGS (1)
  1. AFINITOR [Suspect]
     Active Substance: EVEROLIMUS
     Indication: Product used for unknown indication
     Dosage: UNK
     Route: 065

REACTIONS (9)
  - Cardiac failure [Unknown]
  - Neoplasm malignant [Unknown]
  - Lymphoedema [Unknown]
  - General physical health deterioration [Unknown]
  - Oedema [Unknown]
  - Illness [Unknown]
  - Nail injury [Unknown]
  - Nail infection [Unknown]
  - Product use issue [Unknown]
